FAERS Safety Report 5070353-2 (Version None)
Quarter: 2006Q3

REPORT INFORMATION
  Report Type: 
  Country: None (occurrence: None)
  Receive Date: 20060731
  Receipt Date: 20060717
  Transmission Date: 20061208
  Serious: Yes (Other)
  Sender: FDA-Public Use
  Company Number: CHNY2006GB02111

PATIENT
  Sex: Female

DRUGS (1)
  1. NICOTINELL LOZENGE (NCH)(NICOTINE) LOZENGE [Suspect]
     Indication: SMOKING CESSATION THERAPY
     Dosage: BUCCAL
     Route: 002
     Dates: start: 20060714

REACTIONS (4)
  - HALLUCINATION [None]
  - INFLUENZA LIKE ILLNESS [None]
  - MALAISE [None]
  - SOMNOLENCE [None]
